FAERS Safety Report 16963514 (Version 1)
Quarter: 2019Q4

REPORT INFORMATION
  Report Type: Spontaneous
  Country: US (occurrence: US)
  Receive Date: 20191025
  Receipt Date: 20191025
  Transmission Date: 20200122
  Serious: No
  Sender: FDA-Public Use
  Company Number: US-009507513-1910USA013360

PATIENT
  Age: 35 Year
  Sex: Female

DRUGS (2)
  1. FOLLISTIM AQ [Suspect]
     Active Substance: FOLLITROPIN
     Dosage: 75 INTERNATIONAL UNIT, QD
     Route: 058
     Dates: start: 20190905
  2. PUREGON PEN [DEVICE] [Suspect]
     Active Substance: DEVICE

REACTIONS (3)
  - Injection site erythema [Unknown]
  - Injection site reaction [Unknown]
  - Injection site warmth [Unknown]

NARRATIVE: CASE EVENT DATE: 20191018
